FAERS Safety Report 20497300 (Version 1)
Quarter: 2022Q1

REPORT INFORMATION
  Report Type: Report from Study
  Country: GB (occurrence: GB)
  Receive Date: 20220221
  Receipt Date: 20220221
  Transmission Date: 20220424
  Serious: Yes (Hospitalization)
  Sender: FDA-Public Use
  Company Number: GB-LEO PHARMA-341129

PATIENT
  Age: 56 Year
  Sex: Female

DRUGS (1)
  1. BRODALUMAB [Suspect]
     Active Substance: BRODALUMAB
     Indication: Psoriasis
     Dosage: 210MG WEEK 0,1 AND 2 THEN EVERY TWO WEEKS.
     Route: 058
     Dates: start: 202103

REACTIONS (3)
  - Renal disorder [Unknown]
  - Bladder disorder [Unknown]
  - Inappropriate schedule of product administration [Unknown]
